FAERS Safety Report 7779405-7 (Version None)
Quarter: 2011Q3

REPORT INFORMATION
  Report Type: 
  Country: None (occurrence: None)
  Receive Date: 20110927
  Receipt Date: 20091216
  Transmission Date: 20111222
  Serious: No
  Sender: FDA-Public Use
  Company Number: 2009BI041281

PATIENT
  Age: 51 Year
  Sex: Male

DRUGS (1)
  1. TYSABRI [Suspect]
     Indication: MULTIPLE SCLEROSIS
     Route: 042
     Dates: start: 20070413

REACTIONS (8)
  - INFLUENZA [None]
  - DEPRESSION [None]
  - FALL [None]
  - HEAD INJURY [None]
  - EXCORIATION [None]
  - DEMENTIA [None]
  - HEADACHE [None]
  - MULTIPLE SCLEROSIS [None]
